FAERS Safety Report 6352541-8 (Version None)
Quarter: 2009Q3

REPORT INFORMATION
  Report Type: 
  Country: None (occurrence: None)
  Receive Date: 20090912
  Receipt Date: 20090622
  Transmission Date: 20100115
  Serious: No
  Sender: FDA-Public Use
  Company Number: US-ABBOTT-08P-163-0440530-00

PATIENT
  Sex: Female
  Weight: 105.78 kg

DRUGS (1)
  1. HUMIRA [Suspect]
     Indication: CROHN'S DISEASE
     Route: 058
     Dates: start: 20070611

REACTIONS (14)
  - ABDOMINAL PAIN UPPER [None]
  - ASTHENIA [None]
  - FATIGUE [None]
  - FEELING COLD [None]
  - FEELING HOT [None]
  - GASTROINTESTINAL DISORDER [None]
  - GASTROINTESTINAL INFLAMMATION [None]
  - INCORRECT DOSE ADMINISTERED [None]
  - INJECTION SITE EXTRAVASATION [None]
  - INJECTION SITE HAEMORRHAGE [None]
  - MALAISE [None]
  - PAIN [None]
  - PYREXIA [None]
  - UNEVALUABLE EVENT [None]
